FAERS Safety Report 7218492-1 (Version None)
Quarter: 2011Q1

REPORT INFORMATION
  Report Type: 
  Country: None (occurrence: None)
  Receive Date: 20110110
  Receipt Date: 20110104
  Transmission Date: 20110831
  Serious: Yes (Other)
  Sender: FDA-Public Use
  Company Number: US-PFIZER INC-2010125268

PATIENT
  Sex: Male
  Weight: 136 kg

DRUGS (6)
  1. ACTOS [Concomitant]
     Dosage: 45 MG, 1X/DAY
  2. GLIPIZIDE [Concomitant]
     Dosage: 5 MG, 2X/DAY
  3. SUTENT [Suspect]
     Indication: METASTATIC RENAL CELL CARCINOMA
     Dosage: 50 MG, DAILY, 4 WEEKS ON 2 WEEKS
     Route: 048
     Dates: start: 20100924, end: 20101011
  4. WARFARIN [Concomitant]
     Dosage: UNK
  5. TERAZOSIN [Concomitant]
     Dosage: 10 MG, 1X/DAY
  6. TOPROL-XL [Concomitant]
     Dosage: 100 MG, UNK

REACTIONS (2)
  - VISION BLURRED [None]
  - WHITE BLOOD CELL COUNT DECREASED [None]
